FAERS Safety Report 11828674 (Version 1)
Quarter: 2015Q4

REPORT INFORMATION
  Report Type: Spontaneous
  Country: FI (occurrence: FI)
  Receive Date: 20151211
  Receipt Date: 20151211
  Transmission Date: 20160305
  Serious: Yes (Other)
  Sender: FDA-Public Use
  Company Number: FI-SA-2015SA204109

PATIENT
  Sex: Female

DRUGS (7)
  1. BISOPROACT [Concomitant]
     Indication: CARDIAC DISORDER
     Route: 048
  2. SIMVASTATIN. [Concomitant]
     Active Substance: SIMVASTATIN
     Indication: CARDIAC DISORDER
     Route: 048
  3. PRIMASPAN [Suspect]
     Active Substance: ASPIRIN
     Indication: THROMBOSIS PROPHYLAXIS
     Route: 048
     Dates: start: 20150201, end: 20151118
  4. ORMOX [Concomitant]
     Route: 048
  5. PLAVIX [Suspect]
     Active Substance: CLOPIDOGREL BISULFATE
     Indication: THROMBOSIS PROPHYLAXIS
     Route: 048
     Dates: start: 20150201, end: 20151118
  6. DINIT [Concomitant]
     Active Substance: ISOSORBIDE DINITRATE
     Route: 048
  7. PERINDOPRIL [Concomitant]
     Active Substance: PERINDOPRIL
     Indication: CARDIAC DISORDER
     Route: 048

REACTIONS (7)
  - Decreased immune responsiveness [Unknown]
  - Malaise [Unknown]
  - Dizziness [Unknown]
  - Pneumonia [Unknown]
  - Contusion [Unknown]
  - Influenza [Unknown]
  - Respiratory disorder [Unknown]

NARRATIVE: CASE EVENT DATE: 2015
